FAERS Safety Report 25941653 (Version 1)
Quarter: 2025Q4

REPORT INFORMATION
  Report Type: Report from Study
  Country: BR (occurrence: BR)
  Receive Date: 20251020
  Receipt Date: 20251020
  Transmission Date: 20260119
  Serious: Yes (Other)
  Sender: BAYER HEALTHCARE PHARMACEUTICALS INC.
  Company Number: BR-BAYER-2025A114945

PATIENT
  Age: 50 Year
  Sex: Female

DRUGS (3)
  1. STIVARGA [Suspect]
     Active Substance: REGORAFENIB MONOHYDRATE
     Indication: Colorectal cancer
     Dosage: 80 MG, QD  IN THE 1ST WEEK, 3 TABLETS/DAY IN THE 2ND, 4 TABLETS/DAY IN THE 3RD AND A BREAK IN THE
     Route: 048
     Dates: start: 20250731, end: 2025
  2. STIVARGA [Suspect]
     Active Substance: REGORAFENIB MONOHYDRATE
     Indication: Metastases to liver
     Dosage: 160 MG, QD
     Route: 048
     Dates: start: 2025, end: 2025
  3. STIVARGA [Suspect]
     Active Substance: REGORAFENIB MONOHYDRATE
     Indication: Colorectal cancer
     Dosage: 120 MG
     Route: 048
     Dates: start: 20251001

REACTIONS (10)
  - Hypertension [Recovering/Resolving]
  - Polyarthritis [Recovering/Resolving]
  - Skin exfoliation [Recovering/Resolving]
  - Skin wound [Recovering/Resolving]
  - Product use issue [Recovered/Resolved]
  - Skin ulcer [Recovering/Resolving]
  - Contusion [Recovering/Resolving]
  - Sensitive skin [Recovering/Resolving]
  - Pruritus [Recovering/Resolving]
  - Arthralgia [Recovering/Resolving]

NARRATIVE: CASE EVENT DATE: 20250731
